FAERS Safety Report 7150811-7 (Version None)
Quarter: 2010Q4

REPORT INFORMATION
  Report Type: 
  Country: None (occurrence: None)
  Receive Date: 20101126
  Receipt Date: 20101117
  Transmission Date: 20110411
  Serious: Yes (Hospitalization)
  Sender: FDA-Public Use
  Company Number: 2010SP060589

PATIENT
  Age: 35 Year
  Sex: Female

DRUGS (3)
  1. CERAZETTE (DESOGLESTREL) [Suspect]
     Indication: CONTRACEPTION
     Dosage: 1 DF QD, PO
     Route: 048
     Dates: start: 20100701, end: 20100815
  2. HYDROCORTISONE [Concomitant]
  3. TARDYFERON [Concomitant]

REACTIONS (1)
  - PULMONARY EMBOLISM [None]
